FAERS Safety Report 8943702 (Version 2)
Quarter: 2013Q1

REPORT INFORMATION
  Report Type: Spontaneous
  Country: US (occurrence: US)
  Receive Date: 20121204
  Receipt Date: 20130110
  Transmission Date: 20140127
  Serious: No
  Sender: FDA-Public Use
  Company Number: US-009507513-1212USA000489

PATIENT
  Age: 19 Year
  Sex: Female
  Weight: 58.96 kg

DRUGS (1)
  1. IMPLANON [Suspect]
     Indication: CONTRACEPTION
     Dosage: 1 DF FOR 3 YEARS
     Route: 059
     Dates: start: 20110228

REACTIONS (1)
  - Amenorrhoea [Recovered/Resolved]
